FAERS Safety Report 6859673-6 (Version None)
Quarter: 2010Q3

REPORT INFORMATION
  Report Type: 
  Country: None (occurrence: None)
  Receive Date: 20100720
  Receipt Date: 20100713
  Transmission Date: 20110219
  Serious: Yes (Other)
  Sender: FDA-Public Use
  Company Number: US-ASTRAZENECA-2010SE33365

PATIENT
  Age: 42 Year
  Sex: Male
  Weight: 71.7 kg

DRUGS (5)
  1. SEROQUEL [Suspect]
     Indication: MOOD ALTERED
     Route: 048
     Dates: start: 20021120
  2. LITHOBID [Concomitant]
     Indication: MOOD ALTERED
     Route: 048
     Dates: start: 20021120
  3. NEURONTIN [Concomitant]
     Dates: start: 20090101
  4. RISP [Concomitant]
     Dates: start: 20030306
  5. CELEXA [Concomitant]
     Dates: start: 20030306

REACTIONS (4)
  - DIABETES MELLITUS [None]
  - EXPOSURE TO TOXIC AGENT [None]
  - HEPATIC NEOPLASM MALIGNANT [None]
  - POLYNEUROPATHY [None]
